FAERS Safety Report 4917991-2 (Version None)
Quarter: 2006Q1

REPORT INFORMATION
  Report Type: 
  Country: None (occurrence: None)
  Receive Date: 20060221
  Receipt Date: 20051017
  Transmission Date: 20060701
  Serious: Yes (Hospitalization, Disabling, Other)
  Sender: FDA-Public Use
  Company Number: US-MERCK-0510USA07691

PATIENT
  Age: 54 Year
  Sex: Male
  Weight: 116 kg

DRUGS (11)
  1. VIOXX [Suspect]
     Indication: GOUT
     Route: 048
     Dates: start: 20011101, end: 20030101
  2. VIOXX [Suspect]
     Route: 048
     Dates: start: 20011101, end: 20030101
  3. ALLOPURINOL [Concomitant]
     Indication: GOUT
     Route: 065
  4. OXYCODONE [Concomitant]
     Indication: GOUT
     Route: 065
     Dates: start: 20010901
  5. OXYCODONE [Concomitant]
     Indication: ARTHRITIS
     Route: 065
     Dates: start: 20010901
  6. RELAFEN [Concomitant]
     Indication: ARTHRITIS
     Route: 065
     Dates: start: 19990101
  7. RELAFEN [Concomitant]
     Indication: GOUT
     Route: 065
     Dates: start: 19990101
  8. COLCHICINE [Concomitant]
     Indication: ARTHRITIS
     Route: 065
  9. COLCHICINE [Concomitant]
     Indication: GOUT
     Route: 065
  10. INDOCIN [Concomitant]
     Indication: ARTHRITIS
     Route: 065
  11. INDOCIN [Concomitant]
     Indication: GOUT
     Route: 065

REACTIONS (16)
  - ARTHRALGIA [None]
  - BLOOD CHOLESTEROL INCREASED [None]
  - CEREBROVASCULAR ACCIDENT [None]
  - DEEP VEIN THROMBOSIS [None]
  - DEPRESSION [None]
  - EMOTIONAL DISTRESS [None]
  - ERUCTATION [None]
  - FLATULENCE [None]
  - GASTROINTESTINAL DISORDER [None]
  - HYPERTENSION [None]
  - LETHARGY [None]
  - METABOLIC ENCEPHALOPATHY [None]
  - MYOCARDIAL INFARCTION [None]
  - PRESCRIBED OVERDOSE [None]
  - PULMONARY EMBOLISM [None]
  - SYNCOPE [None]
